FAERS Safety Report 7557470-X (Version None)
Quarter: 2011Q2

REPORT INFORMATION
  Report Type: 
  Country: None (occurrence: None)
  Receive Date: 20110616
  Receipt Date: 20110616
  Transmission Date: 20111010
  Serious: Yes (Hospitalization)
  Sender: FDA-Public Use
  Company Number: None

PATIENT
  Age: 85 Year
  Sex: Male
  Weight: 73 kg

DRUGS (19)
  1. LANSOPRAZOLE [Concomitant]
  2. TRAMADOL HCL [Concomitant]
  3. TERAZOSIN HCL [Concomitant]
  4. SOLIFENACIN SUCCINATE [Concomitant]
  5. MULTI-VITAMIN [Concomitant]
  6. CLOPIDOGREL [Concomitant]
  7. AMOXICILLIN AND CLAVULANATE POTASSIUM [Concomitant]
  8. GUAIFENESIN LA [Concomitant]
  9. LEVOTHYROXINE SODIUM [Concomitant]
  10. SERTRALINE [Concomitant]
  11. ALBUTEROL/IPRATROPIUM NEB [Concomitant]
  12. GLIMEPIRIDE [Concomitant]
  13. ASPIRIN [Concomitant]
  14. PROBIOTIC [Concomitant]
  15. LOVASTATIN [Concomitant]
  16. DRONEDARONE HCL [Concomitant]
  17. THEOPHYLLINE [Concomitant]
  18. DIGOXIN [Suspect]
     Indication: CARDIAC DISORDER
     Dosage: 125 MCG DAILY PO
     Route: 048
  19. DILTIAZEM CD [Concomitant]

REACTIONS (9)
  - BRADYCARDIA [None]
  - ATRIOVENTRICULAR BLOCK [None]
  - PNEUMONIA [None]
  - TOXICITY TO VARIOUS AGENTS [None]
  - SYNCOPE [None]
  - NAUSEA [None]
  - DIARRHOEA [None]
  - LETHARGY [None]
  - EXTRASYSTOLES [None]
